FAERS Safety Report 22259033 (Version 4)
Quarter: 2025Q2

REPORT INFORMATION
  Report Type: Report from Study
  Country: MA (occurrence: MA)
  Receive Date: 20230427
  Receipt Date: 20250610
  Transmission Date: 20250716
  Serious: Yes (Other)
  Sender: NOVARTIS
  Company Number: MA-002147023-NVSC2023MA091731

PATIENT
  Age: 38 Year
  Sex: Female

DRUGS (7)
  1. COSENTYX [Suspect]
     Active Substance: SECUKINUMAB
     Indication: Psoriatic arthropathy
     Dosage: 300 MG, QMO
     Route: 058
     Dates: start: 20220314
  2. COSENTYX [Suspect]
     Active Substance: SECUKINUMAB
     Dosage: 2 DOSAGE FORM, QMO (2 INJECTIONS)
     Route: 065
  3. COSENTYX [Suspect]
     Active Substance: SECUKINUMAB
     Dosage: 2 DOSAGE FORM, QMO (2 INJECTIONS 150 MG)
     Route: 065
  4. COSENTYX [Suspect]
     Active Substance: SECUKINUMAB
     Route: 065
  5. NEBIVOLOL [Concomitant]
     Active Substance: NEBIVOLOL
     Indication: Cardiovascular event prophylaxis
     Dosage: 1.5 DOSAGE FORM, BID
     Route: 065
  6. ALORA [Concomitant]
     Active Substance: ESTRADIOL
     Indication: Ear infection
     Route: 065
  7. No Dep [Concomitant]
     Indication: Depression
     Route: 065

REACTIONS (6)
  - Coronavirus infection [Unknown]
  - Psoriatic arthropathy [Unknown]
  - Pain [Unknown]
  - Movement disorder [Unknown]
  - Dysstasia [Unknown]
  - Arthralgia [Unknown]

NARRATIVE: CASE EVENT DATE: 20220801
